FAERS Safety Report 11876600 (Version 4)
Quarter: 2016Q1

REPORT INFORMATION
  Report Type: Report from Study
  Country: HU (occurrence: HU)
  Receive Date: 20151229
  Receipt Date: 20160322
  Transmission Date: 20160526
  Serious: Yes (Hospitalization)
  Sender: FDA-Public Use
  Company Number: HU-ELI_LILLY_AND_COMPANY-HU201510005822

PATIENT
  Age: 41 Year
  Sex: Male
  Weight: 110 kg

DRUGS (3)
  1. CLONAZEPAM. [Concomitant]
     Active Substance: CLONAZEPAM
     Indication: INSOMNIA
     Dosage: 2 MG, UNK
     Dates: start: 20011001
  2. OLANZAPINE. [Suspect]
     Active Substance: OLANZAPINE
     Indication: SCHIZOPHRENIA
     Dosage: 405 MG, EVERY THREE WEEKS
     Route: 030
     Dates: start: 20140703
  3. OLANZAPINE. [Suspect]
     Active Substance: OLANZAPINE
     Indication: SCHIZOPHRENIA
     Dosage: 7.5 MG, QD (EVERY NIGHT)
     Route: 048
     Dates: start: 19991119

REACTIONS (4)
  - Antipsychotic drug level increased [Unknown]
  - Prescribed overdose [Unknown]
  - Somnolence [Recovered/Resolved]
  - Hypertension [Recovered/Resolved]

NARRATIVE: CASE EVENT DATE: 20140703
